FAERS Safety Report 4679239-6 (Version None)
Quarter: 2005Q2

REPORT INFORMATION
  Report Type: 
  Country: None (occurrence: None)
  Receive Date: 20050531
  Receipt Date: 20050531
  Transmission Date: 20051028
  Serious: Yes (Disabling)
  Sender: FDA-Public Use
  Company Number: None

PATIENT
  Age: 30 Year
  Sex: Female
  Weight: 61.2356 kg

DRUGS (1)
  1. CIPRO [Suspect]
     Dosage: 250MG TWICE A DAY ORAL
     Route: 048

REACTIONS (4)
  - ARTHRALGIA [None]
  - FEELING ABNORMAL [None]
  - PALPITATIONS [None]
  - VASODILATATION [None]
